FAERS Safety Report 24632559 (Version 1)
Quarter: 2024Q4

REPORT INFORMATION
  Report Type: Spontaneous
  Country: BH (occurrence: BH)
  Receive Date: 20241118
  Receipt Date: 20241118
  Transmission Date: 20250115
  Serious: Yes (Other)
  Sender: AMERICAN REGENT
  Company Number: BH-AMERICAN REGENT INC-2024004236

PATIENT
  Age: 3 Decade
  Sex: Female

DRUGS (1)
  1. FERINJECT [Suspect]
     Active Substance: FERRIC CARBOXYMALTOSE
     Indication: Iron deficiency anaemia
     Dosage: 1000 MILLIGRAM DILUTED IN 250 ML IN SALINE FOR 4 WEEKS. (1000 MG,1 IN 1 WK)
     Dates: end: 202409

REACTIONS (2)
  - Serum ferritin increased [Unknown]
  - Fatigue [Not Recovered/Not Resolved]

NARRATIVE: CASE EVENT DATE: 20240901
